FAERS Safety Report 14840556 (Version 3)
Quarter: 2019Q2

REPORT INFORMATION
  Report Type: Spontaneous
  Country: US (occurrence: US)
  Receive Date: 20180503
  Receipt Date: 20190415
  Transmission Date: 20190711
  Serious: Yes (Other)
  Sender: FDA-Public Use
  Company Number: US-ASTRAZENECA-2018SE51940

PATIENT
  Age: 66 Year
  Sex: Male
  Weight: 101.6 kg

DRUGS (21)
  1. CARVEDILOL. [Concomitant]
     Active Substance: CARVEDILOL
     Route: 048
  2. LOSARTAN. [Concomitant]
     Active Substance: LOSARTAN
     Route: 048
  3. JANUVIA [Concomitant]
     Active Substance: SITAGLIPTIN PHOSPHATE
     Route: 048
  4. RANITIDINE. [Concomitant]
     Active Substance: RANITIDINE
     Route: 048
  5. NEXIUM [Suspect]
     Active Substance: ESOMEPRAZOLE MAGNESIUM
     Indication: GASTROOESOPHAGEAL REFLUX DISEASE
     Route: 048
  6. NEXIUM 24HR [Suspect]
     Active Substance: ESOMEPRAZOLE MAGNESIUM
     Route: 048
     Dates: start: 2003, end: 2016
  7. LOSARTAN. [Concomitant]
     Active Substance: LOSARTAN
     Route: 048
  8. FAMOTIDINE. [Concomitant]
     Active Substance: FAMOTIDINE
     Route: 048
  9. PLAVIX [Concomitant]
     Active Substance: CLOPIDOGREL BISULFATE
     Route: 048
  10. ATENOLOL. [Concomitant]
     Active Substance: ATENOLOL
     Route: 048
  11. POTASSIUM CHLORIDE. [Concomitant]
     Active Substance: POTASSIUM CHLORIDE
     Route: 048
  12. NEXIUM [Suspect]
     Active Substance: ESOMEPRAZOLE MAGNESIUM
     Indication: GASTROOESOPHAGEAL REFLUX DISEASE
     Route: 048
     Dates: start: 2003, end: 2016
  13. NEXIUM [Suspect]
     Active Substance: ESOMEPRAZOLE MAGNESIUM
     Indication: GASTROOESOPHAGEAL REFLUX DISEASE
     Route: 048
     Dates: start: 1995
  14. TRICOR [Concomitant]
     Active Substance: FENOFIBRATE
     Route: 048
  15. CLONIDINE. [Concomitant]
     Active Substance: CLONIDINE
     Route: 048
  16. AMLODIPINE BESYLATE. [Concomitant]
     Active Substance: AMLODIPINE BESYLATE
     Route: 048
  17. LEVEMIR [Concomitant]
     Active Substance: INSULIN DETEMIR
     Route: 048
  18. GABAPENTIN. [Concomitant]
     Active Substance: GABAPENTIN
     Route: 048
  19. CEFUROXIME. [Concomitant]
     Active Substance: CEFUROXIME
     Route: 048
  20. PIROXICAM. [Concomitant]
     Active Substance: PIROXICAM
     Route: 048
  21. GABAPENTIN. [Concomitant]
     Active Substance: GABAPENTIN
     Route: 048

REACTIONS (7)
  - Chronic kidney disease [Recovering/Resolving]
  - End stage renal disease [Unknown]
  - Renal failure [Unknown]
  - Diabetic nephropathy [Not Recovered/Not Resolved]
  - Proteinuria [Not Recovered/Not Resolved]
  - Hypertensive nephropathy [Not Recovered/Not Resolved]
  - Renal cyst [Not Recovered/Not Resolved]

NARRATIVE: CASE EVENT DATE: 2006
